FAERS Safety Report 20896940 (Version 1)
Quarter: 2022Q2

REPORT INFORMATION
  Report Type: Spontaneous
  Country: US (occurrence: None)
  Receive Date: 20220531
  Receipt Date: 20220531
  Transmission Date: 20220721
  Serious: No
  Sender: FDA-Public Use
  Company Number: 2022A175548

PATIENT
  Sex: Male
  Weight: 108.9 kg

DRUGS (2)
  1. PULMICORT FLEXHALER [Suspect]
     Active Substance: BUDESONIDE
     Indication: Wheezing
     Route: 055
  2. BEVESPI AEROSPHERE [Suspect]
     Active Substance: FORMOTEROL FUMARATE\GLYCOPYRROLATE
     Indication: Wheezing
     Route: 055

REACTIONS (7)
  - Wheezing [Unknown]
  - Oral pain [Unknown]
  - Stomatitis [Unknown]
  - Pain [Unknown]
  - Feeling abnormal [Unknown]
  - Tongue discomfort [Unknown]
  - Insomnia [Unknown]
